FAERS Safety Report 4975613-9 (Version None)
Quarter: 2006Q1

REPORT INFORMATION
  Report Type: 
  Country: None (occurrence: None)
  Receive Date: 20060222
  Receipt Date: 20050707
  Transmission Date: 20060701
  Serious: Yes (Other)
  Sender: FDA-Public Use
  Company Number: HQWYE805524JAN05

PATIENT
  Sex: Male

DRUGS (1)
  1. PROTONIX [Suspect]
     Dosage: 40 MG - FREQUENCY UNSPECIFIED

REACTIONS (2)
  - DEPRESSION [None]
  - TEARFULNESS [None]
